FAERS Safety Report 17151873 (Version 2)
Quarter: 2020Q3

REPORT INFORMATION
  Report Type: Spontaneous
  Country: CN (occurrence: CN)
  Receive Date: 20191213
  Receipt Date: 20200203
  Transmission Date: 20201105
  Serious: Yes (Hospitalization)
  Sender: FDA-Public Use
  Company Number: CN-CELGENEUS-CHN-20191200654

PATIENT
  Age: 68 Year
  Sex: Male
  Weight: 60 kg

DRUGS (13)
  1. SERPLULIMAB. [Suspect]
     Active Substance: SERPLULIMAB
     Indication: LUNG NEOPLASM MALIGNANT
     Dosage: 261 MILLIGRAM
     Route: 041
     Dates: start: 20190826
  2. BETAMETHASONE SODIUM PHOSPHATE [Concomitant]
     Active Substance: BETAMETHASONE SODIUM PHOSPHATE
     Indication: ANAPHYLAXIS TREATMENT
     Dosage: 4 MILLIGRAM
     Route: 041
     Dates: start: 20191122, end: 20191122
  3. BETAMETHASONE SODIUM PHOSPHATE [Concomitant]
     Active Substance: BETAMETHASONE SODIUM PHOSPHATE
     Dosage: 4 MILLIGRAM
     Route: 041
     Dates: start: 20191129, end: 20191129
  4. SUHUANG ZIKE JIAONANG [Concomitant]
     Indication: COUGH
     Dosage: 4.05 GRAM
     Route: 048
     Dates: start: 20191116
  5. LEUCOGEN [Concomitant]
     Active Substance: LEUCOGEN
     Indication: WHITE BLOOD CELL COUNT
     Dosage: 120 MILLIGRAM
     Route: 048
     Dates: start: 20190917
  6. CARBOPLATIN. [Suspect]
     Active Substance: CARBOPLATIN
     Indication: LUNG NEOPLASM MALIGNANT
     Dosage: 27.0381 MILLIGRAM
     Route: 041
     Dates: start: 20190826
  7. LANSOPRAZOLE. [Concomitant]
     Active Substance: LANSOPRAZOLE
     Indication: PROPHYLAXIS
     Dosage: 30 MILLIGRAM
     Route: 041
     Dates: start: 20191122, end: 20191122
  8. TROPISETRON HYDROCHLORIDE [Concomitant]
     Active Substance: TROPISETRON HYDROCHLORIDE
     Dosage: 5 MILLIGRAM
     Route: 041
     Dates: start: 20191129, end: 20191129
  9. SUHUANG ZIKE JIAONANG [Concomitant]
     Indication: PROPHYLAXIS
     Dosage: 30 MILLIGRAM
     Route: 041
     Dates: start: 20191129, end: 20191129
  10. LANSOPRAZOLE. [Concomitant]
     Active Substance: LANSOPRAZOLE
     Dosage: 30 MILLIGRAM
     Route: 041
     Dates: start: 20191129, end: 20191129
  11. ABRAXANE [Suspect]
     Active Substance: PACLITAXEL
     Indication: LUNG NEOPLASM MALIGNANT
     Dosage: 170.1 MILLILITER
     Route: 041
     Dates: start: 20190826
  12. TROPISETRON HYDROCHLORIDE [Concomitant]
     Active Substance: TROPISETRON HYDROCHLORIDE
     Indication: ANTIEMETIC SUPPORTIVE CARE
     Dosage: 5 MILLIGRAM
     Route: 041
     Dates: start: 20191122, end: 20191122
  13. ONDANSETRON HYDROCHLORIDE. [Concomitant]
     Active Substance: ONDANSETRON HYDROCHLORIDE
     Indication: ANTIEMETIC SUPPORTIVE CARE
     Dosage: 16 MILLIGRAM
     Route: 048
     Dates: start: 20191116, end: 20191121

REACTIONS (1)
  - Hypoaesthesia [Recovering/Resolving]

NARRATIVE: CASE EVENT DATE: 20191202
